FAERS Safety Report 14772754 (Version 1)
Quarter: 2018Q2

REPORT INFORMATION
  Report Type: Spontaneous
  Country: FR (occurrence: FR)
  Receive Date: 20180418
  Receipt Date: 20180418
  Transmission Date: 20180711
  Serious: Yes (Other)
  Sender: FDA-Public Use
  Company Number: FR-MERCK KGAA-2045914

PATIENT
  Age: 58 Year
  Sex: Female

DRUGS (2)
  1. NOVOTHYROX [Suspect]
     Active Substance: LEVOTHYROXINE SODIUM
     Indication: PRODUCT USED FOR UNKNOWN INDICATION
     Dates: start: 20170629
  2. LEVOTHYROX NF [Suspect]
     Active Substance: LEVOTHYROXINE SODIUM

REACTIONS (44)
  - Fatigue [None]
  - Dizziness [None]
  - Arthralgia [None]
  - Hyperhidrosis [None]
  - Weight decreased [None]
  - Nervousness [None]
  - Feeling abnormal [None]
  - Crying [None]
  - Gait disturbance [None]
  - Impaired driving ability [None]
  - Insomnia [None]
  - Aggression [None]
  - Acne [None]
  - Diarrhoea [None]
  - Loss of personal independence in daily activities [None]
  - Muscle spasms [None]
  - Nausea [None]
  - Haemorrhoids [None]
  - Loss of libido [None]
  - Mood swings [None]
  - Polyarthritis [None]
  - Asthenia [None]
  - Gastrooesophageal reflux disease [None]
  - Dysgeusia [None]
  - Eye pruritus [None]
  - Physical disability [None]
  - Chest discomfort [None]
  - Palpitations [None]
  - Tremor [None]
  - Myalgia [None]
  - Oral pain [None]
  - Eating disorder [None]
  - Amnesia [None]
  - Disturbance in attention [None]
  - Lacrimation increased [None]
  - Dyspnoea [None]
  - Social avoidant behaviour [None]
  - Drug intolerance [None]
  - Suicidal ideation [None]
  - Apathy [None]
  - Alopecia [None]
  - Dyspepsia [None]
  - Anxiety [None]
  - Mental disorder [None]

NARRATIVE: CASE EVENT DATE: 201707
